FAERS Safety Report 23873932 (Version 1)
Quarter: 2024Q2

REPORT INFORMATION
  Report Type: Spontaneous
  Country: US (occurrence: None)
  Receive Date: 20240517
  Receipt Date: 20240517
  Transmission Date: 20240716
  Serious: Yes (Other)
  Sender: FDA-Public Use
  Company Number: None

PATIENT
  Age: 85 Year
  Sex: Female
  Weight: 61.83 kg

DRUGS (8)
  1. BRIMONIDINE TARTRATE [Suspect]
     Active Substance: BRIMONIDINE TARTRATE
     Indication: Dry age-related macular degeneration
     Dates: start: 20231120, end: 20240510
  2. LISINOPRIL [Suspect]
     Active Substance: LISINOPRIL
  3. ROSUVASTATIN [Concomitant]
  4. FISH OIL [Concomitant]
  5. CALCIUM [Concomitant]
  6. AREDS2 [Concomitant]
  7. CRANBERRY [Concomitant]
     Active Substance: CRANBERRY
  8. liquid COQ-10 [Concomitant]

REACTIONS (11)
  - Drug hypersensitivity [None]
  - Rash [None]
  - Rash [None]
  - Therapy cessation [None]
  - Blood pressure diastolic decreased [None]
  - Neuropathy peripheral [None]
  - Dizziness [None]
  - Dry mouth [None]
  - Rhinorrhoea [None]
  - Photophobia [None]
  - Bleeding time prolonged [None]

NARRATIVE: CASE EVENT DATE: 20240510
